FAERS Safety Report 6375283-1 (Version None)
Quarter: 2009Q3

REPORT INFORMATION
  Report Type: 
  Country: None (occurrence: None)
  Receive Date: 20090924
  Receipt Date: 20090917
  Transmission Date: 20100115
  Serious: Yes (Other)
  Sender: FDA-Public Use
  Company Number: A0807868A

PATIENT
  Age: 25 Year
  Sex: Female

DRUGS (2)
  1. ADVAIR DISKUS 100/50 [Suspect]
     Indication: ASTHMA
     Dosage: 1PUFF TWICE PER DAY
     Route: 055
     Dates: start: 20090901
  2. PREDNISONE TAB [Concomitant]

REACTIONS (5)
  - ACCIDENTAL OVERDOSE [None]
  - CONDITION AGGRAVATED [None]
  - DIZZINESS [None]
  - THIRST [None]
  - URINE OUTPUT INCREASED [None]
